FAERS Safety Report 5961011-8 (Version None)
Quarter: 2008Q4

REPORT INFORMATION
  Report Type: 
  Country: None (occurrence: None)
  Receive Date: 20081121
  Receipt Date: 20080303
  Transmission Date: 20090506
  Serious: No
  Sender: FDA-Public Use
  Company Number: A0714736A

PATIENT
  Sex: Female

DRUGS (3)
  1. LANOXIN [Suspect]
     Indication: DRUG USE FOR UNKNOWN INDICATION
     Route: 065
  2. METFORMIN HCL [Suspect]
  3. JANUVIA [Concomitant]

REACTIONS (5)
  - ARTHRALGIA [None]
  - BLOOD GLUCOSE INCREASED [None]
  - HEADACHE [None]
  - MYALGIA [None]
  - NAUSEA [None]
